FAERS Safety Report 6515358-7 (Version None)
Quarter: 2009Q4

REPORT INFORMATION
  Report Type: 
  Country: None (occurrence: None)
  Receive Date: 20091223
  Receipt Date: 20091216
  Transmission Date: 20100525
  Serious: Yes (Death, Hospitalization)
  Sender: FDA-Public Use
  Company Number: US-ROCHE-674322

PATIENT
  Sex: Female
  Weight: 53.1 kg

DRUGS (1)
  1. CAPECITABINE [Suspect]
     Indication: BLADDER CANCER
     Route: 048
     Dates: start: 20091026, end: 20091202

REACTIONS (4)
  - CHILLS [None]
  - DEATH [None]
  - MENTAL STATUS CHANGES [None]
  - SOMNOLENCE [None]
